FAERS Safety Report 4721799-0 (Version None)
Quarter: 2005Q3

REPORT INFORMATION
  Report Type: 
  Country: None (occurrence: None)
  Receive Date: 20050721
  Receipt Date: 20050419
  Transmission Date: 20060218
  Serious: No
  Sender: FDA-Public Use
  Company Number: US-BRISTOL-MYERS SQUIBB COMPANY-12938866

PATIENT
  Age: 72 Year
  Sex: Female
  Weight: 46 kg

DRUGS (8)
  1. COUMADIN [Suspect]
     Indication: HEART VALVE REPLACEMENT
     Dosage: (SAMPLES)ALTERNATING 2MG (1-2MG TAB) AND 3MG (1-2MG TAB/1-1 MG TAB) EVERY OTHER DAY-1 MONTH AGO.
     Dates: start: 20050301
  2. COUMADIN [Suspect]
     Dosage: NDC #0056-0169-01
  3. COUMADIN [Suspect]
     Dates: start: 20050301
  4. LIPITOR [Concomitant]
  5. TOPROL-XL [Concomitant]
  6. ASPIRIN [Concomitant]
  7. SYNTHROID [Concomitant]
  8. MULTI-VITAMIN [Concomitant]

REACTIONS (2)
  - DRUG INEFFECTIVE [None]
  - INTERNATIONAL NORMALISED RATIO DECREASED [None]
